FAERS Safety Report 12557587 (Version 2)
Quarter: 2016Q3

REPORT INFORMATION
  Report Type: Spontaneous
  Country: FR (occurrence: FR)
  Receive Date: 20160714
  Receipt Date: 20160822
  Transmission Date: 20161109
  Serious: Yes (Other)
  Sender: FDA-Public Use
  Company Number: FR-PFIZER INC-2016335158

PATIENT
  Sex: Female

DRUGS (8)
  1. LEMTRADA [Concomitant]
     Active Substance: ALEMTUZUMAB
     Dosage: 12 MG, CYCLIC
     Dates: start: 20160527, end: 20160527
  2. SOLU-MEDROL [Suspect]
     Active Substance: METHYLPREDNISOLONE SODIUM SUCCINATE
     Dosage: 500 MG, 1X/DAY
     Route: 042
     Dates: start: 20160527, end: 20160527
  3. SOLU-MEDROL [Suspect]
     Active Substance: METHYLPREDNISOLONE SODIUM SUCCINATE
     Dosage: 500 MG, 1X/DAY
     Route: 042
     Dates: start: 20160530, end: 20160601
  4. SOLU-MEDROL [Suspect]
     Active Substance: METHYLPREDNISOLONE SODIUM SUCCINATE
     Indication: PREMEDICATION
     Dosage: 1 G, 1X/DAY
     Route: 042
     Dates: start: 20160522, end: 20160522
  5. INEXIUM [Suspect]
     Active Substance: ESOMEPRAZOLE
     Indication: PREMEDICATION
     Dosage: 40 MG, 1X/DAY
     Route: 048
     Dates: start: 20160522, end: 20160522
  6. SOLU-MEDROL [Suspect]
     Active Substance: METHYLPREDNISOLONE SODIUM SUCCINATE
     Indication: MULTIPLE SCLEROSIS
     Dosage: 1 G, 1X/DAY
     Route: 042
     Dates: start: 20160526, end: 20160526
  7. INEXIUM [Suspect]
     Active Substance: ESOMEPRAZOLE
     Indication: MULTIPLE SCLEROSIS
     Dosage: 40 MG, 1X/DAY
     Route: 048
     Dates: start: 20160526
  8. OPTIMIZETTE [Concomitant]
     Active Substance: DESOGESTREL

REACTIONS (2)
  - Hepatitis acute [Recovering/Resolving]
  - Rash [Recovering/Resolving]

NARRATIVE: CASE EVENT DATE: 20160523
